FAERS Safety Report 7076827-7 (Version None)
Quarter: 2010Q4

REPORT INFORMATION
  Report Type: 
  Country: None (occurrence: None)
  Receive Date: 20101101
  Receipt Date: 20101022
  Transmission Date: 20110411
  Serious: Yes (Hospitalization)
  Sender: FDA-Public Use
  Company Number: JP-ASTRAZENECA-2010SE50034

PATIENT
  Age: 28731 Day
  Sex: Female
  Weight: 63 kg

DRUGS (12)
  1. ARIMIDEX [Suspect]
     Indication: BREAST CANCER
     Route: 048
     Dates: start: 20081209, end: 20101013
  2. AROMASIN [Suspect]
     Indication: BREAST CANCER
     Route: 048
     Dates: start: 20050704, end: 20081207
  3. LOXONIN [Suspect]
     Indication: METASTASES TO BONE
     Route: 048
  4. TENAXIL [Suspect]
     Indication: HYPERTENSION
     Route: 048
     Dates: start: 20051012, end: 20081222
  5. CANDESARTAN CILEXETIL AND HYDROCHLOROTHIAZIDE [Concomitant]
     Indication: HYPERTENSION
     Route: 048
     Dates: start: 20101012
  6. ALPRAZOLAM [Concomitant]
     Indication: AUTONOMIC NERVOUS SYSTEM IMBALANCE
     Route: 048
  7. SILECE [Concomitant]
     Indication: AUTONOMIC NERVOUS SYSTEM IMBALANCE
     Route: 048
  8. MOHRUS TAPE [Concomitant]
     Indication: ANALGESIC THERAPY
     Dosage: OPTIMAL DOSE
     Route: 062
  9. RHYTHMY [Concomitant]
     Indication: AUTONOMIC NERVOUS SYSTEM IMBALANCE
     Route: 048
     Dates: start: 20050713
  10. SELBEX [Concomitant]
     Indication: GASTRITIS PROPHYLAXIS
     Route: 048
     Dates: start: 20051026
  11. YODEL-S [Concomitant]
     Indication: CONSTIPATION
     Route: 048
     Dates: start: 20070427
  12. ATELEC [Concomitant]
     Indication: HYPERTENSION
     Route: 048
     Dates: start: 20090428

REACTIONS (1)
  - NEPHROGENIC ANAEMIA [None]
